FAERS Safety Report 6045913-2 (Version None)
Quarter: 2009Q1

REPORT INFORMATION
  Report Type: 
  Country: None (occurrence: None)
  Receive Date: 20090116
  Receipt Date: 20090105
  Transmission Date: 20090719
  Serious: Yes (Hospitalization, Disabling)
  Sender: FDA-Public Use
  Company Number: GXKR2009BE00480

PATIENT
  Age: 35 Year
  Sex: Male

DRUGS (1)
  1. TRAZODONE HCL [Suspect]
     Indication: SLEEP DISORDER
     Dosage: 150 MG

REACTIONS (5)
  - AMPUTATION OF PENIS [None]
  - INTERNATIONAL NORMALISED RATIO INCREASED [None]
  - NECROSIS [None]
  - PENILE VEIN THROMBOSIS [None]
  - PRIAPISM [None]
